FAERS Safety Report 5035467-1 (Version None)
Quarter: 2006Q2

REPORT INFORMATION
  Report Type: 
  Country: None (occurrence: None)
  Receive Date: 20060627
  Receipt Date: 20060615
  Transmission Date: 20061013
  Serious: Yes (Death)
  Sender: FDA-Public Use
  Company Number: JP-BRISTOL-MYERS SQUIBB COMPANY-13414198

PATIENT
  Sex: Female

DRUGS (2)
  1. TAXOL [Suspect]
     Indication: CERVIX CARCINOMA
     Route: 042
     Dates: start: 20060101, end: 20060101
  2. PARAPLATIN [Suspect]
     Indication: CERVIX CARCINOMA
     Route: 042
     Dates: start: 20060101, end: 20060101

REACTIONS (1)
  - INTERSTITIAL LUNG DISEASE [None]
